FAERS Safety Report 10559966 (Version 1)
Quarter: 2014Q4

REPORT INFORMATION
  Report Type: Spontaneous
  Country: FR (occurrence: FR)
  Receive Date: 20141103
  Receipt Date: 20141103
  Transmission Date: 20150529
  Serious: Yes (Disabling)
  Sender: FDA-Public Use
  Company Number: FR-BAYER-2014-157534

PATIENT
  Age: 62 Year
  Sex: Female

DRUGS (1)
  1. STIVARGA [Suspect]
     Active Substance: REGORAFENIB
     Indication: COLON CANCER METASTATIC
     Dosage: 1 DF, QD
     Dates: start: 20140930, end: 20141020

REACTIONS (4)
  - Skin exfoliation [None]
  - Pain in extremity [None]
  - Gait disturbance [None]
  - Palmoplantar keratoderma [None]

NARRATIVE: CASE EVENT DATE: 20141018
